FAERS Safety Report 8521425-9 (Version None)
Quarter: 2012Q3

REPORT INFORMATION
  Report Type: 
  Country: None (occurrence: None)
  Receive Date: 20120719
  Receipt Date: 20120713
  Transmission Date: 20120928
  Serious: Yes (Hospitalization)
  Sender: FDA-Public Use
  Company Number: US-SANOFI-AVENTIS-2012SA047415

PATIENT
  Age: 50 Year
  Sex: Female
  Weight: 72.6 kg

DRUGS (19)
  1. BLINDED THERAPY [Suspect]
     Route: 042
     Dates: start: 20120228
  2. SPIRONOLACTONE [Concomitant]
     Route: 048
  3. ATROPINE SULFATE/DIPHENOXYLATE HYDROCHLORIDE [Concomitant]
  4. PROCHLORPERAZINE MALEATE [Concomitant]
     Route: 048
  5. TRAMADOL HYDROCHLORIDE [Concomitant]
     Route: 048
  6. LORAZEPAM [Concomitant]
     Route: 048
  7. MAGNESIUM OXIDE [Concomitant]
     Route: 048
  8. OMEPRAZOLE [Concomitant]
     Route: 048
  9. DEXAMETHASONE [Concomitant]
     Route: 048
  10. PREDNISOLONE ACETATE [Concomitant]
  11. CIPROFLOXACIN [Concomitant]
     Dosage: OPTHALMIC SOLUTION
     Route: 047
  12. MECLIZINE [Concomitant]
     Route: 048
  13. DOCETAXEL [Suspect]
     Route: 042
     Dates: start: 20120228
  14. CARBOPLATIN [Suspect]
     Route: 042
     Dates: start: 20120228
  15. CITALOPRAM HYDROBROMIDE [Concomitant]
     Route: 048
  16. LOPERAMIDE [Concomitant]
     Route: 048
  17. TRASTUZUMAB [Suspect]
     Route: 042
     Dates: start: 20120228
  18. BLINDED THERAPY [Suspect]
     Route: 042
     Dates: start: 20120228
  19. SIMVASTATIN [Concomitant]
     Route: 048

REACTIONS (3)
  - HYPONATRAEMIA [None]
  - ASTHENIA [None]
  - URINARY TRACT INFECTION [None]
